APPROVED DRUG PRODUCT: LEVETIRACETAM
Active Ingredient: LEVETIRACETAM
Strength: 500MG
Dosage Form/Route: TABLET;ORAL
Application: A078869 | Product #002 | TE Code: AB
Applicant: VIWIT PHARMACEUTICAL CO LTD
Approved: Mar 13, 2009 | RLD: No | RS: No | Type: RX